FAERS Safety Report 9172903 (Version 1)
Quarter: 2013Q1

REPORT INFORMATION
  Report Type: Spontaneous
  Country: DE (occurrence: DE)
  Receive Date: 20130319
  Receipt Date: 20130319
  Transmission Date: 20140127
  Serious: Yes (Hospitalization)
  Sender: FDA-Public Use
  Company Number: DE-OTSUKA-EU-2012-10137

PATIENT
  Age: 50 Year
  Sex: Male

DRUGS (8)
  1. SAMSCA [Suspect]
     Indication: INAPPROPRIATE ANTIDIURETIC HORMONE SECRETION
     Dosage: 15 MG MILLIGRAM(S), UNKNOWN
     Route: 065
  2. SAMSCA [Suspect]
     Dosage: 30 MG MILLIGRAM(S), DAILY DOSE
     Route: 065
  3. SAMSCA [Suspect]
     Dosage: 15 MG MILLIGRAM(S), DAILY DOSE
     Route: 048
     Dates: start: 20120227, end: 201204
  4. SAMSCA [Suspect]
     Dosage: 15 MG MILLIGRAM(S), TIW
     Route: 065
     Dates: start: 201204, end: 201204
  5. SAMSCA [Suspect]
     Dosage: 15 MG MILLIGRAM(S), DAILY DOSE
     Route: 065
     Dates: start: 201204
  6. SAMSCA [Suspect]
     Dosage: 45 MG MILLIGRAM(S), QD
     Route: 065
     Dates: start: 201211
  7. PANTOPRAZOLE [Concomitant]
     Indication: GASTRITIS
     Dosage: 20 MG MILLIGRAM(S), BID
     Route: 048
     Dates: start: 20110905
  8. BISOPROLOL [Concomitant]
     Indication: SINUS TACHYCARDIA
     Dosage: 1.25 MG MILLIGRAM(S), BID
     Route: 048
     Dates: start: 20110904

REACTIONS (7)
  - Blood potassium increased [Recovered/Resolved]
  - Blood sodium decreased [Recovered/Resolved]
  - Hyperkalaemia [Unknown]
  - Hyponatraemia [Unknown]
  - Chronic obstructive pulmonary disease [Unknown]
  - Pneumonia [Unknown]
  - Incorrect drug administration rate [Unknown]
